FAERS Safety Report 7801194-8 (Version None)
Quarter: 2011Q4

REPORT INFORMATION
  Report Type: 
  Country: None (occurrence: None)
  Receive Date: 20111007
  Receipt Date: 20110930
  Transmission Date: 20120403
  Serious: No
  Sender: FDA-Public Use
  Company Number: US-BIOGENIDEC-2011BI037714

PATIENT
  Sex: Male

DRUGS (7)
  1. RITALIN [Concomitant]
     Indication: FATIGUE
  2. AVONEX [Concomitant]
     Indication: MULTIPLE SCLEROSIS
     Route: 030
     Dates: start: 19991229
  3. TYSABRI [Suspect]
     Indication: MULTIPLE SCLEROSIS
     Route: 042
     Dates: start: 20080324, end: 20110501
  4. STATIN MEDICATION (NOS) [Concomitant]
     Indication: BLOOD CHOLESTEROL INCREASED
  5. TYSABRI [Suspect]
     Route: 042
     Dates: start: 20070104, end: 20070302
  6. ANTIDEPRESSANT (NOS) [Concomitant]
     Indication: DEPRESSION
     Route: 048
  7. TYSABRI [Suspect]
     Route: 042
     Dates: start: 20041101, end: 20050201

REACTIONS (12)
  - FALL [None]
  - ABDOMINAL PAIN UPPER [None]
  - MEMORY IMPAIRMENT [None]
  - ROTATOR CUFF SYNDROME [None]
  - MYALGIA [None]
  - FEELING ABNORMAL [None]
  - MOBILITY DECREASED [None]
  - APHAGIA [None]
  - ARTHRALGIA [None]
  - JOINT HYPEREXTENSION [None]
  - WEIGHT DECREASED [None]
  - GENERAL SYMPTOM [None]
